FAERS Safety Report 7908914-2 (Version None)
Quarter: 2011Q4

REPORT INFORMATION
  Report Type: 
  Country: None (occurrence: None)
  Receive Date: 20111111
  Receipt Date: 20111031
  Transmission Date: 20120403
  Serious: Yes (Other)
  Sender: FDA-Public Use
  Company Number: JP-BRISTOL-MYERS SQUIBB COMPANY-16203754

PATIENT
  Age: 78 Year
  Sex: Female

DRUGS (5)
  1. CANDESARTAN CILEXETIL [Concomitant]
  2. AMARYL [Concomitant]
  3. METFORMIN HCL [Suspect]
     Indication: DIABETES MELLITUS
     Dosage: INITIALLY 500MG PER DAY
     Route: 048
  4. LIVALO [Suspect]
  5. RISPERDAL [Suspect]

REACTIONS (4)
  - RHABDOMYOLYSIS [None]
  - NEUROLEPTIC MALIGNANT SYNDROME [None]
  - LACTIC ACIDOSIS [None]
  - BLOOD CREATINE PHOSPHOKINASE INCREASED [None]
